FAERS Safety Report 7243747-4 (Version None)
Quarter: 2011Q1

REPORT INFORMATION
  Report Type: 
  Country: None (occurrence: None)
  Receive Date: 20110125
  Receipt Date: 20110119
  Transmission Date: 20110831
  Serious: No
  Sender: FDA-Public Use
  Company Number: US-PFIZER INC-2011015164

PATIENT
  Age: 9 Month
  Sex: Male
  Weight: 10.431 kg

DRUGS (1)
  1. IBUPROFEN (ADVIL) [Suspect]
     Dosage: 1.875 ML, UNK
     Route: 048
     Dates: start: 20110117

REACTIONS (1)
  - INSOMNIA [None]
